FAERS Safety Report 25918475 (Version 1)
Quarter: 2025Q4

REPORT INFORMATION
  Report Type: Spontaneous
  Country: CN (occurrence: CN)
  Receive Date: 20251014
  Receipt Date: 20251014
  Transmission Date: 20260117
  Serious: Yes (Life-Threatening, Other)
  Sender: RANBAXY
  Company Number: CN-SUN PHARMACEUTICAL INDUSTRIES LTD-2025R1-531247

PATIENT
  Sex: Male
  Weight: 1.58 kg

DRUGS (4)
  1. DEXAMETHASONE [Suspect]
     Active Substance: DEXAMETHASONE
     Indication: Maternal therapy to enhance foetal lung maturity
     Dosage: UNK
     Route: 064
  2. MAGNESIUM SULFATE [Suspect]
     Active Substance: MAGNESIUM SULFATE
     Indication: Nervous system disorder prophylaxis
     Dosage: UNK
     Route: 064
  3. CEFOXITIN [Suspect]
     Active Substance: CEFOXITIN SODIUM
     Indication: Infection prophylaxis
     Dosage: UNK
     Route: 064
  4. DYDROGESTERONE [Suspect]
     Active Substance: DYDROGESTERONE
     Indication: Pregnancy
     Dosage: UNK
     Route: 064

REACTIONS (5)
  - Corynebacterium sepsis [Recovered/Resolved]
  - Tachypnoea [Recovered/Resolved]
  - Sepsis neonatal [Recovered/Resolved]
  - Premature baby [Unknown]
  - Foetal exposure during pregnancy [Unknown]
